FAERS Safety Report 8756928 (Version 1)
Quarter: 2012Q4

REPORT INFORMATION
  Report Type: 
  Country: FR (occurrence: FR)
  Receive Date: 20120828
  Receipt Date: 20120828
  Transmission Date: 20130627
  Serious: Yes (Death, Life-Threatening, Hospitalization, Other)
  Sender: FDA-Public Use
  Company Number: FR-BRISTOL-MYERS SQUIBB COMPANY-16864860

PATIENT
  Age: 66 Year
  Sex: Female

DRUGS (3)
  1. COUMADIN [Suspect]
     Route: 048
     Dates: start: 2007, end: 20120519
  2. LASILIX [Concomitant]
  3. ISOPTINE [Concomitant]

REACTIONS (6)
  - Cerebral haemorrhage [Fatal]
  - Hypertension [Unknown]
  - International normalised ratio increased [None]
  - Prothrombin time prolonged [None]
  - Intracranial pressure increased [None]
  - Brain injury [None]
